FAERS Safety Report 14655611 (Version 4)
Quarter: 2018Q3

REPORT INFORMATION
  Report Type: Report from Study
  Country: JP (occurrence: JP)
  Receive Date: 20180319
  Receipt Date: 20180730
  Transmission Date: 20181010
  Serious: Yes (Other)
  Sender: FDA-Public Use
  Company Number: JP-TEVA-763208ROM

PATIENT
  Age: 33 Year
  Sex: Female
  Weight: 38.2 kg

DRUGS (4)
  1. GLATIRAMER ACETATE. [Suspect]
     Active Substance: GLATIRAMER ACETATE
     Dosage: 20 MILLIGRAM DAILY;
     Route: 058
     Dates: start: 20170529, end: 20171209
  2. GASTER [Concomitant]
     Active Substance: FAMOTIDINE
     Dates: end: 20171209
  3. GLATIRAMER ACETATE. [Suspect]
     Active Substance: GLATIRAMER ACETATE
     Indication: RELAPSING-REMITTING MULTIPLE SCLEROSIS
     Dosage: 20 MILLIGRAM DAILY;
     Route: 058
     Dates: start: 20161227, end: 20170419
  4. EDIROL [Concomitant]
     Active Substance: ELDECALCITOL
     Dates: end: 20171209

REACTIONS (9)
  - Anaphylactic reaction [Recovered/Resolved]
  - Anaphylactic shock [Recovering/Resolving]
  - Injection site reaction [Recovering/Resolving]
  - Dyspnoea [Recovered/Resolved]
  - Urticaria [Recovering/Resolving]
  - Cardiovascular disorder [Unknown]
  - Injection site pain [Unknown]
  - Rash [Unknown]
  - Respiratory disorder [Unknown]

NARRATIVE: CASE EVENT DATE: 20170122
